FAERS Safety Report 5842733-6 (Version None)
Quarter: 2008Q3

REPORT INFORMATION
  Report Type: 
  Country: None (occurrence: None)
  Receive Date: 20080808
  Receipt Date: 20080724
  Transmission Date: 20090109
  Serious: Yes (Death, Hospitalization)
  Sender: FDA-Public Use
  Company Number: 2008S1000477

PATIENT
  Age: 75 Year
  Sex: Male
  Weight: 74.8 kg

DRUGS (25)
  1. ROXANOL [Suspect]
  2. RAD001+ ERLOTINIB [Suspect]
     Indication: PANCREATIC CARCINOMA
     Dosage: 30 MG; QW; PO
     Route: 048
     Dates: start: 20080423, end: 20080423
  3. ERLOTINIB [Suspect]
     Indication: PANCREAS TRANSPLANT
     Dosage: 150 MG; QD; PO
     Route: 048
     Dates: start: 20080423, end: 20080429
  4. KLONOPIN [Suspect]
  5. NORVASC [Concomitant]
  6. PRILOSEC [Concomitant]
  7. SENOKOT [Concomitant]
  8. MIRALAX [Concomitant]
  9. REGLAN [Concomitant]
  10. DOXYCYCLINE [Concomitant]
  11. ENULOSE [Concomitant]
  12. MILK OF MAGNESIA [Concomitant]
  13. SIMETHICONE [Concomitant]
  14. TEMAZEPAM [Concomitant]
  15. FENTANYL-25 [Concomitant]
  16. ATIVAN [Concomitant]
  17. GLIMEPIRIDE [Concomitant]
  18. PROMETHAZINE [Concomitant]
  19. LYRICA [Concomitant]
  20. CYMBALTA [Concomitant]
  21. MORPHINE [Concomitant]
  22. BENTYL [Concomitant]
  23. LIDODERM [Concomitant]
  24. STEROIDS NOS [Concomitant]
  25. CULTURELLE [Concomitant]

REACTIONS (30)
  - ABDOMINAL PAIN UPPER [None]
  - ABNORMAL BEHAVIOUR [None]
  - ARTHRALGIA [None]
  - BLOOD ALBUMIN DECREASED [None]
  - CANDIDIASIS [None]
  - CARDIO-RESPIRATORY DISTRESS [None]
  - CEREBROVASCULAR ACCIDENT [None]
  - CONFUSIONAL STATE [None]
  - CONTUSION [None]
  - CORNEAL REFLEX DECREASED [None]
  - DEHYDRATION [None]
  - DEPRESSED LEVEL OF CONSCIOUSNESS [None]
  - DIARRHOEA [None]
  - DIZZINESS [None]
  - EPISTAXIS [None]
  - FAILURE TO THRIVE [None]
  - FALL [None]
  - FEELING COLD [None]
  - GAIT DISTURBANCE [None]
  - HERPES SIMPLEX [None]
  - MALIGNANT NEOPLASM PROGRESSION [None]
  - MALNUTRITION [None]
  - MENTAL STATUS CHANGES [None]
  - METASTASES TO BONE [None]
  - MYDRIASIS [None]
  - OEDEMA PERIPHERAL [None]
  - PANCREATIC CARCINOMA METASTATIC [None]
  - RENAL FAILURE ACUTE [None]
  - SPEECH DISORDER [None]
  - URINE OUTPUT DECREASED [None]
